FAERS Safety Report 9337291 (Version 1)
Quarter: 2013Q2

REPORT INFORMATION
  Report Type: Spontaneous
  Country: AU (occurrence: AU)
  Receive Date: 20130607
  Receipt Date: 20130607
  Transmission Date: 20140414
  Serious: Yes (Other)
  Sender: FDA-Public Use
  Company Number: AU-JNJFOC-20130602654

PATIENT
  Age: 24 Year
  Sex: Female

DRUGS (1)
  1. NICORETTE QUICKMIST [Suspect]
     Indication: SMOKING CESSATION THERAPY
     Route: 048
     Dates: start: 20130604

REACTIONS (1)
  - Asthma [Recovered/Resolved]
